FAERS Safety Report 7069565 (Version 2)
Quarter: 2014Q3

REPORT INFORMATION
  Report Type: Spontaneous
  Country: US (occurrence: None)
  Receive Date: 20090724
  Receipt Date: 20140909
  Transmission Date: 20150326
  Serious: Yes (Hospitalization, Other)
  Sender: FDA-Public Use
  Company Number: 2009S1005621

PATIENT
  Age: 50 Year
  Sex: Male

DRUGS (6)
  1. TIMOLOL [Concomitant]
     Active Substance: TIMOLOL
  2. LISINOPRIL. [Concomitant]
     Active Substance: LISINOPRIL
  3. PHOSPHO-SODA [Suspect]
     Active Substance: SODIUM PHOSPHATE, DIBASIC\SODIUM PHOSPHATE, MONOBASIC
     Indication: COLONOSCOPY
     Route: 048
  4. COUMADIN [Concomitant]
     Active Substance: WARFARIN SODIUM
  5. ASPIRIN. [Concomitant]
     Active Substance: ASPIRIN
  6. ACETAZOLAMIDE. [Concomitant]
     Active Substance: ACETAZOLAMIDE

REACTIONS (6)
  - Nephrogenic anaemia [None]
  - Hyperparathyroidism secondary [None]
  - Cardiac failure congestive [None]
  - Renal failure [None]
  - Thrombotic microangiopathy [None]
  - Asthenia [None]

NARRATIVE: CASE EVENT DATE: 20090130
